FAERS Safety Report 7472157-X (Version None)
Quarter: 2011Q2

REPORT INFORMATION
  Report Type: 
  Country: None (occurrence: None)
  Receive Date: 20110511
  Receipt Date: 20110131
  Transmission Date: 20111010
  Serious: No
  Sender: FDA-Public Use
  Company Number: A0912107A

PATIENT
  Sex: Female

DRUGS (1)
  1. TYKERB [Suspect]
     Dosage: 1250MG PER DAY
     Dates: start: 20110108

REACTIONS (5)
  - SKIN CHAPPED [None]
  - DIARRHOEA [None]
  - ABDOMINAL PAIN LOWER [None]
  - DRY SKIN [None]
  - SKIN EXFOLIATION [None]
